FAERS Safety Report 4984023-X (Version None)
Quarter: 2006Q1

REPORT INFORMATION
  Report Type: 
  Country: None (occurrence: None)
  Receive Date: 20060301
  Receipt Date: 20051202
  Transmission Date: 20060701
  Serious: Yes (Other)
  Sender: FDA-Public Use
  Company Number: S05-USA-05059-01

PATIENT
  Age: 84 Year
  Sex: Female

DRUGS (2)
  1. NAMENDA [Suspect]
     Dates: end: 20050101
  2. NAMENDA [Suspect]
     Dates: end: 20050101

REACTIONS (1)
  - GASTROINTESTINAL HAEMORRHAGE [None]
